FAERS Safety Report 9504275 (Version 1)
Quarter: 2013Q3

REPORT INFORMATION
  Report Type: Spontaneous
  Country: US (occurrence: US)
  Receive Date: 20130906
  Receipt Date: 20130906
  Transmission Date: 20140515
  Serious: Yes (Death, Other)
  Sender: FDA-Public Use
  Company Number: US-COVIDIEN/TYCO HEALTHCARE/MALLINCKRODT-T201304255

PATIENT
  Age: 74 Year
  Sex: Female
  Weight: 71.66 kg

DRUGS (7)
  1. MORPHINE SULFATE [Suspect]
     Indication: DISCOMFORT
     Dosage: 0.375 ML
     Route: 060
     Dates: start: 201308, end: 20130827
  2. MORPHINE SULFATE [Suspect]
     Dosage: 0.5 - 1ML, Q 2 HRS, PRN
     Route: 060
     Dates: start: 20130821, end: 201308
  3. SINGULAIR [Concomitant]
     Dosage: UNK
     Route: 048
  4. ATROPINE [Concomitant]
     Dosage: UNK
     Route: 060
  5. XANAX [Concomitant]
     Dosage: UNK
     Route: 048
  6. THEOPHYLLINE [Concomitant]
     Dosage: UNK
     Route: 065
  7. PREDNISONE [Concomitant]
     Indication: DISCOMFORT
     Dosage: UNK
     Route: 048

REACTIONS (10)
  - Gastrointestinal haemorrhage [Fatal]
  - Haematemesis [Recovering/Resolving]
  - Increased upper airway secretion [Recovering/Resolving]
  - Obstructive airways disorder [Recovering/Resolving]
  - Cough [Recovering/Resolving]
  - Pyrexia [Recovering/Resolving]
  - Somnolence [Unknown]
  - Dysphonia [Unknown]
  - Incorrect dose administered [Unknown]
  - Incorrect product storage [Unknown]
